APPROVED DRUG PRODUCT: NAFCILLIN SODIUM
Active Ingredient: NAFCILLIN SODIUM
Strength: EQ 2GM BASE/VIAL
Dosage Form/Route: INJECTABLE;INJECTION
Application: A206682 | Product #002
Applicant: FRESENIUS KABI IPSUM SRL
Approved: Dec 10, 2019 | RLD: No | RS: No | Type: DISCN